FAERS Safety Report 4649343-7 (Version None)
Quarter: 2005Q2

REPORT INFORMATION
  Report Type: 
  Country: None (occurrence: None)
  Receive Date: 20050429
  Receipt Date: 20050420
  Transmission Date: 20051028
  Serious: Yes (Death)
  Sender: FDA-Public Use
  Company Number: DE-ABBOTT-05P-062-0298021-00

PATIENT
  Sex: Male

DRUGS (4)
  1. ERGENYL TABLETS [Suspect]
     Indication: INTENTIONAL MISUSE
     Route: 048
     Dates: start: 20050401, end: 20050401
  2. ERGENYL TABLETS [Suspect]
     Indication: CLUSTER HEADACHE
     Route: 048
  3. ETHANOL [Concomitant]
     Indication: DRUG USE FOR UNKNOWN INDICATION
     Route: 048
     Dates: start: 20050401, end: 20050401
  4. ETHANOL [Concomitant]

REACTIONS (5)
  - COMPLETED SUICIDE [None]
  - HEPATIC FAILURE [None]
  - INTENTIONAL MISUSE [None]
  - RESPIRATORY FAILURE [None]
  - THROMBOCYTOPENIA [None]
